FAERS Safety Report 21172356 (Version 1)
Quarter: 2022Q3

REPORT INFORMATION
  Report Type: Spontaneous
  Country: US (occurrence: None)
  Receive Date: 20220803
  Receipt Date: 20220803
  Transmission Date: 20221026
  Serious: Yes (Other)
  Sender: FDA-Public Use
  Company Number: None

PATIENT
  Age: 47 Year
  Sex: Male
  Weight: 103.5 kg

DRUGS (8)
  1. MONTELUKAST SODIUM [Suspect]
     Active Substance: MONTELUKAST SODIUM
     Indication: Asthma
     Dosage: OTHER QUANTITY : 30 CAPSULE(S);?FREQUENCY : DAILY;?
     Route: 048
  2. MONTELUKAST SODIUM [Suspect]
     Active Substance: MONTELUKAST SODIUM
     Indication: Hypersensitivity
  3. FISH OIL [Concomitant]
     Active Substance: FISH OIL
  4. VITAMIN D3 [Concomitant]
     Active Substance: CHOLECALCIFEROL
  5. E [Concomitant]
  6. IRON [Concomitant]
     Active Substance: IRON
  7. ZINC [Concomitant]
     Active Substance: ZINC
  8. protien [Concomitant]

REACTIONS (6)
  - Depression [None]
  - Suicidal ideation [None]
  - Hallucination, visual [None]
  - Hallucination, auditory [None]
  - Anger [None]
  - Abnormal behaviour [None]

NARRATIVE: CASE EVENT DATE: 20200217
